FAERS Safety Report 11854687 (Version 1)
Quarter: 2015Q4

REPORT INFORMATION
  Report Type: Spontaneous
  Country: US (occurrence: None)
  Receive Date: 20151218
  Receipt Date: 20151218
  Transmission Date: 20160305
  Serious: No
  Sender: FDA-Public Use
  Company Number: None

PATIENT
  Age: 39 Year

DRUGS (2)
  1. TOPAMAX [Suspect]
     Active Substance: TOPIRAMATE
  2. SUMATRIPTAN. [Concomitant]
     Active Substance: SUMATRIPTAN

REACTIONS (8)
  - Weight decreased [None]
  - Nausea [None]
  - Vision blurred [None]
  - Feeling abnormal [None]
  - Depression [None]
  - Mood swings [None]
  - Stress [None]
  - Dizziness [None]

NARRATIVE: CASE EVENT DATE: 20151212
